FAERS Safety Report 7205596-2 (Version None)
Quarter: 2010Q4

REPORT INFORMATION
  Report Type: 
  Country: None (occurrence: None)
  Receive Date: 20101231
  Receipt Date: 20101220
  Transmission Date: 20110411
  Serious: Yes (Hospitalization)
  Sender: FDA-Public Use
  Company Number: TW-NOVOPROD-320438

PATIENT
  Age: 6 Year
  Sex: Female

DRUGS (2)
  1. NOVORAPID PENFILL [Suspect]
     Route: 058
  2. INSULATARD HM [Suspect]
     Indication: TYPE 1 DIABETES MELLITUS

REACTIONS (1)
  - PRECURSOR B-LYMPHOBLASTIC LYMPHOMA [None]
